FAERS Safety Report 5914294-4 (Version None)
Quarter: 2008Q4

REPORT INFORMATION
  Report Type: 
  Country: None (occurrence: None)
  Receive Date: 20081009
  Receipt Date: 20080930
  Transmission Date: 20090506
  Serious: Yes (Hospitalization)
  Sender: FDA-Public Use
  Company Number: IT-B.I. PHARMACEUTICALS,INC./RIDGEFIELD-2008-IT-00161IT

PATIENT
  Sex: Male

DRUGS (6)
  1. MIRAPEX [Suspect]
     Indication: PARKINSON'S DISEASE
     Route: 048
     Dates: start: 20080806, end: 20080807
  2. ENTUMIN [Concomitant]
     Indication: PSYCHOMOTOR HYPERACTIVITY
     Dosage: 25 DROPS
     Route: 048
     Dates: start: 20080806, end: 20080806
  3. TORADOL [Concomitant]
     Dosage: 1 VIAL
     Route: 030
  4. MUSCORIL [Concomitant]
     Dosage: 1 VIAL
     Route: 030
  5. LORAZEPAM [Concomitant]
     Dosage: 1MG
     Route: 048
  6. VALIUM [Concomitant]
     Dosage: 5 DROPS
     Route: 048

REACTIONS (3)
  - CONFUSIONAL STATE [None]
  - RESTLESSNESS [None]
  - SOPOR [None]
